FAERS Safety Report 5877299-8 (Version None)
Quarter: 2008Q3

REPORT INFORMATION
  Report Type: 
  Country: None (occurrence: None)
  Receive Date: 20080910
  Receipt Date: 20080904
  Transmission Date: 20090109
  Serious: Yes (Disabling)
  Sender: FDA-Public Use
  Company Number: US-MERCK-0808USA02601

PATIENT
  Age: 72 Year
  Sex: Female

DRUGS (2)
  1. TIMOPTIC [Suspect]
     Indication: GLAUCOMA
     Route: 047
  2. TIMOPTIC [Suspect]
     Route: 047
     Dates: start: 20080825

REACTIONS (10)
  - ABASIA [None]
  - ANOREXIA [None]
  - ASTHMA [None]
  - BLOOD PRESSURE DECREASED [None]
  - DIARRHOEA [None]
  - EYE OEDEMA [None]
  - EYE PRURITUS [None]
  - EYELID EXFOLIATION [None]
  - FATIGUE [None]
  - NAUSEA [None]
